FAERS Safety Report 23297639 (Version 2)
Quarter: 2024Q1

REPORT INFORMATION
  Report Type: Spontaneous
  Country: US (occurrence: US)
  Receive Date: 20231214
  Receipt Date: 20240101
  Transmission Date: 20240409
  Serious: Yes (Other)
  Sender: FDA-Public Use
  Company Number: US-JNJFOC-20231212838

PATIENT
  Age: 5 Decade
  Sex: Female

DRUGS (1)
  1. FAMOTIDINE [Suspect]
     Active Substance: FAMOTIDINE
     Indication: Product used for unknown indication
     Route: 048
     Dates: start: 202203

REACTIONS (15)
  - Drug dependence [Not Recovered/Not Resolved]
  - Withdrawal syndrome [Unknown]
  - Nervousness [Unknown]
  - Illness [Unknown]
  - Dyspepsia [Unknown]
  - Muscle spasms [Unknown]
  - Decreased appetite [Unknown]
  - Anxiety [Unknown]
  - Irritability [Unknown]
  - Flushing [Unknown]
  - Feeling abnormal [Unknown]
  - Feeling jittery [Unknown]
  - Dehydration [Unknown]
  - Nausea [Unknown]
  - Abdominal pain [Unknown]
